FAERS Safety Report 6837751-5 (Version None)
Quarter: 2010Q3

REPORT INFORMATION
  Report Type: 
  Country: None (occurrence: None)
  Receive Date: 20100713
  Receipt Date: 20070521
  Transmission Date: 20110219
  Serious: No
  Sender: FDA-Public Use
  Company Number: US-PFIZER INC-2007041300

PATIENT
  Sex: Female
  Weight: 45.4 kg

DRUGS (3)
  1. CHANTIX [Suspect]
     Indication: SMOKING CESSATION THERAPY
     Dates: start: 20070507, end: 20070519
  2. DRUG, UNSPECIFIED [Concomitant]
     Indication: HYPOTHYROIDISM
  3. DRUG, UNSPECIFIED [Concomitant]
     Indication: OSTEOPOROSIS

REACTIONS (1)
  - VOMITING [None]
